FAERS Safety Report 25461214 (Version 1)
Quarter: 2025Q2

REPORT INFORMATION
  Report Type: Spontaneous
  Country: TW (occurrence: TW)
  Receive Date: 20250620
  Receipt Date: 20250620
  Transmission Date: 20250716
  Serious: Yes (Other)
  Sender: ROCHE
  Company Number: TW-ROCHE-10000312546

PATIENT

DRUGS (6)
  1. ATEZOLIZUMAB [Suspect]
     Active Substance: ATEZOLIZUMAB
     Indication: Non-small cell lung cancer
     Route: 065
     Dates: start: 20210814
  2. BEVACIZUMAB [Suspect]
     Active Substance: BEVACIZUMAB
     Indication: Non-small cell lung cancer
     Route: 065
     Dates: start: 20210814
  3. PEMETREXED [Suspect]
     Active Substance: PEMETREXED
     Indication: Non-small cell lung cancer
     Route: 065
     Dates: start: 20210814
  4. CISPLATIN [Suspect]
     Active Substance: CISPLATIN
     Indication: Non-small cell lung cancer
     Route: 065
     Dates: start: 20210814
  5. OSIMERTINIB [Concomitant]
     Active Substance: OSIMERTINIB
     Dates: start: 202308, end: 202403
  6. AFATINIB [Concomitant]
     Active Substance: AFATINIB

REACTIONS (5)
  - Metastases to meninges [Unknown]
  - Altered state of consciousness [Unknown]
  - Performance status decreased [Unknown]
  - Disease progression [Unknown]
  - Off label use [Unknown]
